FAERS Safety Report 18121345 (Version 2)
Quarter: 2020Q4

REPORT INFORMATION
  Report Type: Report from Study
  Country: DE (occurrence: DE)
  Receive Date: 20200806
  Receipt Date: 20201005
  Transmission Date: 20210113
  Serious: Yes (Other)
  Sender: FDA-Public Use
  Company Number: DE-NEUROCRINE BIOSCIENCES INC.-2020NBI02783

PATIENT
  Age: 72 Year
  Sex: Female

DRUGS (3)
  1. XADAGO [Suspect]
     Active Substance: SAFINAMIDE MESYLATE
     Indication: ON AND OFF PHENOMENON
     Dosage: UNKNOWN
     Route: 065
  2. MADOPAR [Suspect]
     Active Substance: BENSERAZIDE HYDROCHLORIDE\LEVODOPA
     Indication: ON AND OFF PHENOMENON
     Dosage: UNK, 200 (UNITS UNKNOWN)
     Route: 065
  3. ONGENTYS [Suspect]
     Active Substance: OPICAPONE
     Indication: ON AND OFF PHENOMENON
     Dosage: UNKNOWN
     Route: 065

REACTIONS (15)
  - Anosmia [Unknown]
  - Fatigue [Unknown]
  - Confusional state [Unknown]
  - Constipation [Unknown]
  - Therapeutic response shortened [Unknown]
  - Tremor [Unknown]
  - Gait disturbance [Unknown]
  - On and off phenomenon [Unknown]
  - Muscle rigidity [Unknown]
  - Dysphagia [Unknown]
  - Reduced facial expression [Unknown]
  - Dystonia [Unknown]
  - Bradykinesia [Unknown]
  - Saliva altered [Unknown]
  - Sleep disorder [Unknown]
